FAERS Safety Report 20145963 (Version 5)
Quarter: 2022Q3

REPORT INFORMATION
  Report Type: Spontaneous
  Country: US (occurrence: US)
  Receive Date: 20211203
  Receipt Date: 20220929
  Transmission Date: 20221026
  Serious: Yes (Other)
  Sender: FDA-Public Use
  Company Number: US-TEVA-2021-US-1983288

PATIENT
  Sex: Female

DRUGS (2)
  1. QVAR REDIHALER [Suspect]
     Active Substance: BECLOMETHASONE DIPROPIONATE
     Indication: Asthma
     Route: 055
  2. QVAR REDIHALER [Suspect]
     Active Substance: BECLOMETHASONE DIPROPIONATE
     Dosage: UNIT DOSE: 80 MCG

REACTIONS (8)
  - Choking [Unknown]
  - Cough [Unknown]
  - Nausea [Unknown]
  - Oropharyngeal pain [Unknown]
  - Device malfunction [Unknown]
  - Product physical consistency issue [Unknown]
  - Device delivery system issue [Unknown]
  - Device delivery system issue [Unknown]
